FAERS Safety Report 7880364-7 (Version None)
Quarter: 2011Q4

REPORT INFORMATION
  Report Type: 
  Country: None (occurrence: None)
  Receive Date: 20111101
  Receipt Date: 20111028
  Transmission Date: 20120403
  Serious: Yes (Life-Threatening, Hospitalization, Other)
  Sender: FDA-Public Use
  Company Number: PHHY2011GB95517

PATIENT
  Age: 64 Year
  Sex: Female
  Weight: 100 kg

DRUGS (6)
  1. GABAPENTIN [Interacting]
     Dosage: 900 MG, TID
     Route: 048
  2. GABAPENTIN [Interacting]
     Dosage: 600 MG, UNK
     Route: 048
     Dates: start: 20110601
  3. FENTANYL-100 [Interacting]
     Dosage: 50 UG/HOUR
     Route: 062
  4. GLICLAZIDE [Concomitant]
  5. FENTANYL-100 [Interacting]
     Dosage: 12.5 UG/HOUR
     Route: 062
     Dates: start: 20110615
  6. GABAPENTIN [Suspect]
     Indication: PAIN
     Dosage: 300 MG, UNK
     Route: 048
     Dates: start: 20110104

REACTIONS (4)
  - RESPIRATORY ARREST [None]
  - DRUG INTERACTION [None]
  - SOMNOLENCE [None]
  - HYPOVENTILATION [None]
